FAERS Safety Report 6566647-1 (Version None)
Quarter: 2010Q1

REPORT INFORMATION
  Report Type: 
  Country: None (occurrence: None)
  Receive Date: 20100202
  Receipt Date: 20100119
  Transmission Date: 20100710
  Serious: Yes (Hospitalization)
  Sender: FDA-Public Use
  Company Number: US-MYLANLABS-2010S1000760

PATIENT
  Age: 66 Year
  Sex: Female
  Weight: 104 kg

DRUGS (2)
  1. COLCHICINE [Suspect]
     Indication: GOUT
  2. HYDROXYCHLOROQUINE SULFATE [Suspect]
     Indication: RHEUMATOID ARTHRITIS

REACTIONS (1)
  - MYOPATHY [None]
